FAERS Safety Report 6242711-1 (Version None)
Quarter: 2009Q2

REPORT INFORMATION
  Report Type: 
  Country: None (occurrence: None)
  Receive Date: 20090624
  Receipt Date: 20090619
  Transmission Date: 20091009
  Serious: Yes (Death)
  Sender: FDA-Public Use
  Company Number: PHHY2008CA18087

PATIENT
  Sex: Female

DRUGS (4)
  1. SANDOSTATIN [Suspect]
     Indication: NEUROENDOCRINE TUMOUR
     Dosage: 20 MG, QMO
     Route: 030
     Dates: start: 20090201, end: 20090301
  2. SANDOSTATIN [Suspect]
     Indication: CARCINOID SYNDROME
  3. TYLENOL W/ CODEINE NO. 3 [Concomitant]
  4. MORPHINE [Concomitant]

REACTIONS (3)
  - METASTASES TO BONE [None]
  - METASTASES TO LIVER [None]
  - NEUROENDOCRINE TUMOUR [None]
